FAERS Safety Report 7656166-3 (Version None)
Quarter: 2011Q3

REPORT INFORMATION
  Report Type: 
  Country: None (occurrence: None)
  Receive Date: 20110804
  Receipt Date: 20110802
  Transmission Date: 20111222
  Serious: Yes (Other)
  Sender: FDA-Public Use
  Company Number: US-PFIZER INC-2011176857

PATIENT
  Sex: Female

DRUGS (2)
  1. TAMIFLU [Concomitant]
     Dosage: UNK
  2. ZITHROMAX [Suspect]
     Dosage: 250 MG, UNK
     Route: 048

REACTIONS (2)
  - AGEUSIA [None]
  - ANOSMIA [None]
